FAERS Safety Report 6932336-4 (Version None)
Quarter: 2010Q3

REPORT INFORMATION
  Report Type: 
  Country: None (occurrence: None)
  Receive Date: 20100819
  Receipt Date: 20100730
  Transmission Date: 20110219
  Serious: Yes (Hospitalization, Other)
  Sender: FDA-Public Use
  Company Number: US-BAYER-201013737NA

PATIENT
  Age: 24 Year
  Sex: Female
  Weight: 118 kg

DRUGS (3)
  1. YASMIN [Suspect]
     Indication: ORAL CONTRACEPTION
     Route: 048
     Dates: start: 20050801, end: 20080901
  2. NORA-BE [Concomitant]
     Indication: CONTRACEPTION
     Dates: start: 20090615, end: 20090901
  3. LOESTRIN 1.5/30 [Concomitant]
     Dates: start: 20100101

REACTIONS (10)
  - ABDOMINAL PAIN [None]
  - ABDOMINAL PAIN UPPER [None]
  - BILE DUCT STONE [None]
  - CHOLANGITIS [None]
  - CHOLELITHIASIS [None]
  - GALLBLADDER DISORDER [None]
  - GALLBLADDER PAIN [None]
  - JAUNDICE [None]
  - OCULAR ICTERUS [None]
  - PAIN [None]
